FAERS Safety Report 11396742 (Version 1)
Quarter: 2015Q3

REPORT INFORMATION
  Report Type: Spontaneous
  Country: US (occurrence: US)
  Receive Date: 20150819
  Receipt Date: 20150819
  Transmission Date: 20151125
  Serious: Yes (Hospitalization)
  Sender: FDA-Public Use
  Company Number: US-HORIZON-ACT-0142-2015

PATIENT
  Age: 77 Year
  Sex: Female

DRUGS (1)
  1. ACTIMMUNE [Suspect]
     Active Substance: INTERFERON GAMMA-1B
     Indication: PULMONARY FIBROSIS
     Dates: start: 20150616

REACTIONS (2)
  - Off label use [Unknown]
  - Immunoglobulin therapy [Unknown]

NARRATIVE: CASE EVENT DATE: 20150813
